FAERS Safety Report 6552260-9 (Version None)
Quarter: 2010Q1

REPORT INFORMATION
  Report Type: 
  Country: None (occurrence: None)
  Receive Date: 20100126
  Receipt Date: 20100115
  Transmission Date: 20100710
  Serious: Yes (Hospitalization, Other)
  Sender: FDA-Public Use
  Company Number: US-PFIZER INC-2010004763

PATIENT
  Age: 68 Year
  Sex: Male

DRUGS (2)
  1. DOXIL [Suspect]
     Indication: PROSTATE CANCER
     Dosage: 25 MG/M2, Q4 WEEKS
     Route: 042
     Dates: start: 20091216, end: 20091216
  2. TEMSIROLIMUS [Suspect]
     Indication: PROSTATE CANCER
     Dosage: 25 MG, WEEKLY
     Route: 042
     Dates: start: 20091216, end: 20091223

REACTIONS (8)
  - BLOOD ALKALINE PHOSPHATASE INCREASED [None]
  - DYSPNOEA [None]
  - FATIGUE [None]
  - HYPOALBUMINAEMIA [None]
  - HYPONATRAEMIA [None]
  - HYPOTENSION [None]
  - PULMONARY EMBOLISM [None]
  - RENAL FAILURE ACUTE [None]
